FAERS Safety Report 18753083 (Version 3)
Quarter: 2021Q1

REPORT INFORMATION
  Report Type: Spontaneous
  Country: FR (occurrence: FR)
  Receive Date: 20210118
  Receipt Date: 20210218
  Transmission Date: 20210419
  Serious: Yes (Life-Threatening, Hospitalization, Other)
  Sender: FDA-Public Use
  Company Number: NVSC2021FR008368

PATIENT
  Age: 55 Year
  Sex: Male
  Weight: 54 kg

DRUGS (4)
  1. LYRICA [Interacting]
     Active Substance: PREGABALIN
     Indication: PRODUCT USED FOR UNKNOWN INDICATION
     Dosage: UNK (UNK)
     Route: 048
  2. NORSET [Interacting]
     Active Substance: MIRTAZAPINE
     Indication: PRODUCT USED FOR UNKNOWN INDICATION
     Dosage: UNK (INCONNU)
     Route: 048
     Dates: start: 20201211, end: 20201217
  3. RISPERIDONE. [Suspect]
     Active Substance: RISPERIDONE
     Indication: BIPOLAR DISORDER
     Dosage: UNK (INCONNU)
     Route: 048
     Dates: start: 20201211, end: 20201217
  4. TRAMADOL HYDROCHLORIDE. [Interacting]
     Active Substance: TRAMADOL HYDROCHLORIDE
     Indication: PRODUCT USED FOR UNKNOWN INDICATION
     Dosage: UNK (INCONNU)
     Route: 048
     Dates: end: 20201217

REACTIONS (5)
  - Drug abuse [Recovered/Resolved]
  - Drug interaction [Recovered/Resolved]
  - Drug interaction [Unknown]
  - Coma [Recovered/Resolved]
  - Tachypnoea [Recovered/Resolved]

NARRATIVE: CASE EVENT DATE: 202012
